FAERS Safety Report 8818786 (Version 3)
Quarter: 2015Q3

REPORT INFORMATION
  Report Type: Report from Study
  Country: US (occurrence: US)
  Receive Date: 20121001
  Receipt Date: 20150701
  Transmission Date: 20151125
  Serious: Yes (Death, Hospitalization, Other)
  Sender: FDA-Public Use
  Company Number: US-ROCHE-1129545

PATIENT
  Sex: Female

DRUGS (21)
  1. GEMZAR [Concomitant]
     Active Substance: GEMCITABINE HYDROCHLORIDE
     Route: 065
  2. TAXOTERE [Concomitant]
     Active Substance: DOCETAXEL
     Route: 065
  3. ZOFRAN [Concomitant]
     Active Substance: ONDANSETRON HYDROCHLORIDE
     Route: 065
  4. DECADRON [Concomitant]
     Active Substance: DEXAMETHASONE
     Route: 065
  5. TAXOL [Concomitant]
     Active Substance: PACLITAXEL
     Route: 042
  6. CARBOPLATIN. [Concomitant]
     Active Substance: CARBOPLATIN
     Route: 042
  7. 5-FLUOROURACIL [Concomitant]
     Active Substance: FLUOROURACIL
  8. NEUPOGEN [Suspect]
     Active Substance: FILGRASTIM
     Indication: LEUKOPENIA
     Route: 065
     Dates: start: 19990908
  9. NEUPOGEN [Suspect]
     Active Substance: FILGRASTIM
     Indication: NEUTROPENIA
  10. TAXOTERE [Concomitant]
     Active Substance: DOCETAXEL
     Route: 065
  11. ZOMETA [Concomitant]
     Active Substance: ZOLEDRONIC ACID
     Route: 065
  12. ADRIAMYCIN [Concomitant]
     Active Substance: DOXORUBICIN HYDROCHLORIDE
     Route: 065
  13. ZANTAC [Concomitant]
     Active Substance: RANITIDINE HYDROCHLORIDE
     Route: 065
  14. FLAGYL [Suspect]
     Active Substance: METRONIDAZOLE\METRONIDAZOLE HYDROCHLORIDE
     Indication: DIARRHOEA
     Route: 065
  15. NAVELBINE [Concomitant]
     Active Substance: VINORELBINE TARTRATE
     Route: 065
  16. MS CONTIN [Concomitant]
     Active Substance: MORPHINE SULFATE
     Route: 048
  17. HERCEPTIN [Suspect]
     Active Substance: TRASTUZUMAB
     Indication: BREAST CANCER METASTATIC
     Dosage: 10/JUN/2003 (400 MG), 06/JAN/2003 (880 MG), 07/NOV/2002 (880 MG), 16/SEP/2002 (660 MG), 08/OCT/2002
     Route: 042
     Dates: start: 20030527
  18. CYTOXAN [Concomitant]
     Active Substance: CYCLOPHOSPHAMIDE
     Route: 065
  19. HERCEPTIN [Suspect]
     Active Substance: TRASTUZUMAB
     Indication: BREAST CANCER FEMALE
     Dosage: 26/APR/2002 (220 MG), 02/MAY/2002 (220 MG), 09/MAY/2002 (220 MG), 16/MAY/2002 (220 MG), ?23/MAY/2002
     Route: 042
     Dates: start: 20020417
  20. ZOFRAN [Concomitant]
     Active Substance: ONDANSETRON HYDROCHLORIDE
     Route: 065
  21. BENADRYL [Concomitant]
     Active Substance: DIPHENHYDRAMINE HYDROCHLORIDE
     Route: 065

REACTIONS (22)
  - Metastases to liver [Unknown]
  - Leukocytosis [Unknown]
  - Scan abdomen abnormal [Unknown]
  - Asthenia [Unknown]
  - Ascites [Unknown]
  - Arthralgia [Unknown]
  - Death [Fatal]
  - Ejection fraction decreased [Unknown]
  - Diabetes mellitus [Unknown]
  - Pulmonary vascular disorder [Unknown]
  - Metastases to lung [Unknown]
  - Pyrexia [Unknown]
  - Nausea [Unknown]
  - Lymphoedema [Unknown]
  - Cardiac failure congestive [Unknown]
  - Anaemia [Unknown]
  - Cardiomegaly [Unknown]
  - Pain in extremity [Unknown]
  - Vomiting [Unknown]
  - Diarrhoea [Recovered/Resolved]
  - Metastases to bone [Unknown]
  - Hypokalaemia [Unknown]
